FAERS Safety Report 26000925 (Version 1)
Quarter: 2025Q4

REPORT INFORMATION
  Report Type: Spontaneous
  Country: RU (occurrence: RU)
  Receive Date: 20251105
  Receipt Date: 20251105
  Transmission Date: 20260117
  Serious: Yes (Death)
  Sender: ROCHE
  Company Number: RU-ROCHE-10000426563

PATIENT
  Age: 47 Year

DRUGS (2)
  1. GLOFITAMAB [Suspect]
     Active Substance: GLOFITAMAB
     Indication: Diffuse large B-cell lymphoma
     Dosage: FIRST CYCLE OF 4TH-LINE THERAPY
     Route: 065
  2. GLOFITAMAB [Suspect]
     Active Substance: GLOFITAMAB
     Route: 065
     Dates: start: 20251028

REACTIONS (1)
  - Death [Fatal]

NARRATIVE: CASE EVENT DATE: 20251028
